FAERS Safety Report 6540385-3 (Version None)
Quarter: 2010Q1

REPORT INFORMATION
  Report Type: 
  Country: None (occurrence: None)
  Receive Date: 20100115
  Receipt Date: 20100107
  Transmission Date: 20100710
  Serious: Yes (Hospitalization)
  Sender: FDA-Public Use
  Company Number: US-ROCHE-678948

PATIENT
  Sex: Female
  Weight: 106.1 kg

DRUGS (9)
  1. TRASTUZUMAB [Suspect]
     Indication: BREAST CANCER
     Route: 042
     Dates: start: 20050819, end: 20060127
  2. CAPECITABINE [Suspect]
     Indication: BREAST CANCER
     Dosage: FREQUENCY:TWICE DAILY FOR 14 DAYS OUT OF 21 DAYS.
     Route: 048
     Dates: start: 20051111, end: 20060126
  3. EPIRUBICIN HYDROCHLORIDE [Suspect]
     Indication: BREAST CANCER
     Route: 042
     Dates: start: 20050819, end: 20051021
  4. 5-FU [Suspect]
     Indication: BREAST CANCER
     Route: 042
     Dates: start: 20050819, end: 20051021
  5. CYTOXAN [Suspect]
     Indication: BREAST CANCER
     Route: 042
     Dates: start: 20050819, end: 20051021
  6. TAXOTERE [Suspect]
     Indication: BREAST CANCER
     Route: 042
     Dates: start: 20051111, end: 20060120
  7. LOPERAMIDE [Concomitant]
     Dates: start: 20050901
  8. MAALOX [Concomitant]
     Dates: start: 20050930
  9. NEXIUM [Concomitant]
     Dates: start: 20051021

REACTIONS (2)
  - CHEST PAIN [None]
  - DYSPNOEA [None]
